FAERS Safety Report 13517907 (Version 2)
Quarter: 2017Q3

REPORT INFORMATION
  Report Type: Spontaneous
  Country: US (occurrence: US)
  Receive Date: 20170505
  Receipt Date: 20170711
  Transmission Date: 20171127
  Serious: Yes (Death, Disabling, Other)
  Sender: FDA-Public Use
  Company Number: US-REGENERON PHARMACEUTICALS, INC.-2017-15152

PATIENT

DRUGS (2)
  1. EYLEA [Suspect]
     Active Substance: AFLIBERCEPT
     Indication: NEOVASCULAR AGE-RELATED MACULAR DEGENERATION
     Dosage: 2 MG /0.05 ML EVERY SIX WEEKS, RIGHT EYE (OD)
     Route: 031
     Dates: start: 20151019
  2. EYLEA [Suspect]
     Active Substance: AFLIBERCEPT
     Dosage: 2 MG/0.05 ML EVERY SIX WEEKS, RIGHT EYE (OD)
     Route: 031
     Dates: start: 20170324, end: 20170324

REACTIONS (4)
  - Endophthalmitis [Not Recovered/Not Resolved]
  - Mental status changes [Unknown]
  - Sepsis [Fatal]
  - Blindness unilateral [Unknown]

NARRATIVE: CASE EVENT DATE: 20170324
